FAERS Safety Report 18910342 (Version 1)
Quarter: 2021Q1

REPORT INFORMATION
  Report Type: Spontaneous
  Country: US (occurrence: US)
  Receive Date: 20210218
  Receipt Date: 20210218
  Transmission Date: 20210420
  Serious: Yes (Other)
  Sender: FDA-Public Use
  Company Number: US-GLAXOSMITHKLINE-US2021GSK027171

PATIENT
  Sex: Female

DRUGS (4)
  1. ZANTAC [Suspect]
     Active Substance: RANITIDINE HYDROCHLORIDE
     Indication: GASTROOESOPHAGEAL REFLUX DISEASE
     Dosage: UNKNOWN AT THIS TIME OVER THE COUNTER, PERIODS OF NON?USE (AT LEAST 3 MONTHS WITHOUT USE)
     Route: 065
     Dates: start: 199501, end: 201601
  2. RANITIDINE. [Suspect]
     Active Substance: RANITIDINE
     Indication: GASTROOESOPHAGEAL REFLUX DISEASE
     Dosage: UNKNOWN AT THIS TIME OVER THE COUNTER, PERIODS OF NON?USE (AT LEAST 3 MONTHS WITHOUT USE)
     Route: 065
     Dates: start: 199501, end: 201601
  3. ZANTAC [Suspect]
     Active Substance: RANITIDINE HYDROCHLORIDE
     Indication: GASTROOESOPHAGEAL REFLUX DISEASE
     Dosage: UNKNOWN AT THIS TIME OVER THE COUNTER, PERIODS OF NON?USE (AT LEAST 3 MONTHS WITHOUT USE)
     Route: 065
     Dates: start: 199501, end: 201601
  4. RANITIDINE. [Suspect]
     Active Substance: RANITIDINE
     Indication: GASTROOESOPHAGEAL REFLUX DISEASE
     Dosage: UNKNOWN AT THIS TIME OVER THE COUNTER, PERIODS OF NON?USE (AT LEAST 3 MONTHS WITHOUT USE)
     Route: 065
     Dates: start: 199501, end: 201601

REACTIONS (1)
  - Breast cancer [Unknown]
